FAERS Safety Report 4336382-9 (Version None)
Quarter: 2004Q2

REPORT INFORMATION
  Report Type: 
  Country: None (occurrence: None)
  Receive Date: 20040407
  Receipt Date: 20040325
  Transmission Date: 20050107
  Serious: Yes (Hospitalization)
  Sender: FDA-Public Use
  Company Number: 2004008145

PATIENT
  Age: 71 Year
  Sex: Female

DRUGS (15)
  1. LITHIUM CARBONATE [Suspect]
     Indication: ILL-DEFINED DISORDER
  2. OXCARBAZEPINE           (OXCARBAZEPINE) [Concomitant]
  3. ACETYLSALICYLIC ACID SRT [Concomitant]
  4. DOCUSATE SODIUM            (DOCUSATE SODIUM) [Concomitant]
  5. LISINOPRIL [Concomitant]
  6. METOPROLOL TARTRATE [Concomitant]
  7. NEPHROCAPS (FOLIC ACID, VITAMINS NOS) [Concomitant]
  8. PANTOPRAZOLE (PANTOPRAZOLE) [Concomitant]
  9. PYRIDOXINE HCL [Concomitant]
  10. SEVELAMER HYDROCHLORIDE (SEVELAMER HYDROCHLORIDE) [Concomitant]
  11. SIMVASTATIN (SIMVASTATIN0 [Concomitant]
  12. ERYTHROPOIETIN (ERYTHROPOIETIN) [Concomitant]
  13. PARICALCITOL (PARICALCITOL) [Concomitant]
  14. DIMETICONE, ACTIVATED (SIMETICONE) [Concomitant]
  15. OLANZAPINE [Concomitant]

REACTIONS (4)
  - BIPOLAR DISORDER [None]
  - DIALYSIS [None]
  - RENAL FAILURE CHRONIC [None]
  - SCHIZOPHRENIA [None]
